FAERS Safety Report 7005018-0 (Version None)
Quarter: 2010Q3

REPORT INFORMATION
  Report Type: 
  Country: None (occurrence: None)
  Receive Date: 20100921
  Receipt Date: 20070516
  Transmission Date: 20110219
  Serious: Yes (Other)
  Sender: FDA-Public Use
  Company Number: IT-CELGENEUS-083-20785-07050930

PATIENT

DRUGS (4)
  1. THALIDOMIDE [Suspect]
     Indication: MULTIPLE MYELOMA
     Route: 048
  2. BORTEZOMIB [Concomitant]
     Indication: MULTIPLE MYELOMA
     Dosage: 1.0, 1.3, 1.6MG/M^2
     Route: 040
  3. MELPHALAN HYDROCHLORIDE [Concomitant]
     Indication: MULTIPLE MYELOMA
     Route: 048
  4. PREDNISONE [Concomitant]
     Indication: MULTIPLE MYELOMA
     Route: 048

REACTIONS (4)
  - FATIGUE [None]
  - INFECTION [None]
  - NEUROPATHY PERIPHERAL [None]
  - VASCULITIS [None]
